FAERS Safety Report 7339385-5 (Version None)
Quarter: 2011Q1

REPORT INFORMATION
  Report Type: 
  Country: None (occurrence: None)
  Receive Date: 20110308
  Receipt Date: 20110225
  Transmission Date: 20110831
  Serious: Yes (Hospitalization)
  Sender: FDA-Public Use
  Company Number: JP-ASTRAZENECA-2011SE12017

PATIENT
  Age: 77 Year
  Sex: Male

DRUGS (11)
  1. PLAVIX [Concomitant]
     Indication: POSTOPERATIVE CARE
     Route: 048
     Dates: start: 20071129, end: 20110103
  2. ZYLORIC [Concomitant]
     Indication: HYPERURICAEMIA
     Route: 048
     Dates: start: 20061005
  3. MAGMITT [Concomitant]
     Indication: CONSTIPATION
     Route: 048
     Dates: start: 20110105, end: 20110112
  4. CRESTOR [Concomitant]
     Indication: DYSLIPIDAEMIA
     Route: 048
     Dates: start: 20061005
  5. HEPARIN SODIUM INJECTION-N [Concomitant]
     Route: 042
     Dates: start: 20110105, end: 20110110
  6. HEPARIN SODIUM INJECTION-N [Concomitant]
     Route: 042
     Dates: start: 20110111
  7. SEFIROM [Concomitant]
     Indication: PROPHYLAXIS
     Route: 042
     Dates: start: 20110118
  8. HEPARIN SODIUM INJECTION-N [Concomitant]
     Indication: PROPHYLAXIS
     Route: 042
     Dates: start: 20110104, end: 20110104
  9. OMEPRAL [Concomitant]
     Indication: GASTRIC ULCER
     Route: 048
     Dates: start: 20060321
  10. ASPIRIN [Concomitant]
     Indication: ANGINA PECTORIS
     Route: 048
     Dates: start: 20060220, end: 20110103
  11. ECARD COMBINATION HD [Suspect]
     Indication: HYPERTENSION
     Route: 048
     Dates: start: 20100429, end: 20110119

REACTIONS (2)
  - LARGE INTESTINE CARCINOMA [None]
  - IRON DEFICIENCY ANAEMIA [None]
